FAERS Safety Report 10926832 (Version 8)
Quarter: 2015Q4

REPORT INFORMATION
  Report Type: Spontaneous
  Country: US (occurrence: US)
  Receive Date: 20150318
  Receipt Date: 20151028
  Transmission Date: 20160304
  Serious: Yes (Hospitalization, Disabling, Other)
  Sender: FDA-Public Use
  Company Number: US-009507513-1503USA008388

PATIENT
  Sex: Female
  Weight: 71.66 kg

DRUGS (9)
  1. FOSAMAX [Suspect]
     Active Substance: ALENDRONATE SODIUM
     Indication: OSTEOPOROSIS
  2. BONIVA [Suspect]
     Active Substance: IBANDRONATE SODIUM
     Indication: OSTEOPENIA
     Dosage: 150 MG, QM
     Route: 065
     Dates: start: 2006, end: 201305
  3. BONIVA [Suspect]
     Active Substance: IBANDRONATE SODIUM
     Indication: OSTEOPOROSIS
  4. SYNTHROID [Concomitant]
     Active Substance: LEVOTHYROXINE SODIUM
     Indication: THYROID DISORDER
     Dosage: 137 MICROGRAM, UNK
     Route: 065
     Dates: start: 1995
  5. FOSAMAX [Suspect]
     Active Substance: ALENDRONATE SODIUM
     Indication: OSTEOPENIA
     Dosage: 70 MG, QW
     Route: 048
     Dates: start: 200206, end: 200605
  6. IBANDRONATE SODIUM. [Suspect]
     Active Substance: IBANDRONATE SODIUM
     Indication: OSTEOPENIA
     Dosage: UNK
     Route: 065
     Dates: start: 2012, end: 2013
  7. PROTONIX [Concomitant]
     Active Substance: PANTOPRAZOLE SODIUM
     Indication: GASTROOESOPHAGEAL REFLUX DISEASE
     Dosage: 40 MG, QD
     Route: 065
     Dates: start: 200206
  8. IBANDRONATE SODIUM. [Suspect]
     Active Substance: IBANDRONATE SODIUM
     Indication: OSTEOPOROSIS
  9. HORMONES (UNSPECIFIED) [Concomitant]
     Active Substance: UNSPECIFIED INGREDIENT
     Indication: HYSTERECTOMY
     Dosage: UNK
     Dates: start: 1997

REACTIONS (52)
  - Staphylococcal infection [Unknown]
  - Anaemia [Unknown]
  - Impaired healing [Unknown]
  - Knee arthroplasty [Unknown]
  - Low turnover osteopathy [Unknown]
  - Vitamin D deficiency [Unknown]
  - Calcium deficiency [Unknown]
  - Psoriasis [Unknown]
  - Patellofemoral pain syndrome [Not Recovered/Not Resolved]
  - Somnolence [Unknown]
  - Upper airway obstruction [Unknown]
  - Eyelid operation [Unknown]
  - Bursitis [Unknown]
  - Joint swelling [Unknown]
  - Arthritis [Unknown]
  - Joint effusion [Unknown]
  - Drug-induced liver injury [Unknown]
  - Eczema [Unknown]
  - Vision blurred [Unknown]
  - Tooth fracture [Unknown]
  - Headache [Unknown]
  - Femur fracture [Unknown]
  - Meniscus injury [Not Recovered/Not Resolved]
  - Rib fracture [Unknown]
  - Nausea [Unknown]
  - Muscle rupture [Unknown]
  - Foot fracture [Unknown]
  - Back pain [Unknown]
  - Foot fracture [Unknown]
  - Depression [Unknown]
  - Bone contusion [Unknown]
  - Nasal congestion [Unknown]
  - Nasal septum perforation [Unknown]
  - Osteoarthritis [Unknown]
  - Arthroscopy [Unknown]
  - Skin ulcer [Unknown]
  - Peripheral swelling [Unknown]
  - Osteoporosis [Unknown]
  - Gallbladder operation [Unknown]
  - Endodontic procedure [Unknown]
  - Oral surgery [Unknown]
  - Osteopetrosis [Unknown]
  - Anxiety [Unknown]
  - Hypothyroidism [Unknown]
  - Sleep apnoea syndrome [Unknown]
  - Sleep disorder [Unknown]
  - Weight increased [Unknown]
  - Lower limb fracture [Unknown]
  - Impaired healing [Unknown]
  - Impaired gastric emptying [Unknown]
  - Epistaxis [Unknown]
  - Head injury [Unknown]

NARRATIVE: CASE EVENT DATE: 2004
